FAERS Safety Report 9130310 (Version 2)
Quarter: 2013Q1

REPORT INFORMATION
  Report Type: Spontaneous
  Country: CO (occurrence: CO)
  Receive Date: 20130228
  Receipt Date: 20130312
  Transmission Date: 20140127
  Serious: Yes (Hospitalization)
  Sender: FDA-Public Use
  Company Number: CO-009507513-1302COL012753

PATIENT
  Age: 58 Year
  Sex: Female

DRUGS (5)
  1. PEG-INTRON [Suspect]
     Dosage: 100 MICROGRAM, UNKNOWN
     Dates: start: 20120514
  2. BOCEPREVIR [Suspect]
     Dosage: 800 MG, UNKNOWN
     Route: 048
     Dates: start: 20120612
  3. RIBAVIRIN [Concomitant]
     Dosage: UNK
     Route: 065
  4. EPOETIN [Concomitant]
  5. METFORMIN [Concomitant]

REACTIONS (7)
  - Gastroenteritis [Unknown]
  - Asthenia [Unknown]
  - Full blood count abnormal [Unknown]
  - Pyrexia [Unknown]
  - Diarrhoea [Unknown]
  - Abdominal pain [Unknown]
  - Asthenia [Unknown]
